FAERS Safety Report 22035405 (Version 1)
Quarter: 2023Q1

REPORT INFORMATION
  Report Type: Report from Study
  Country: CA (occurrence: CA)
  Receive Date: 20230224
  Receipt Date: 20230224
  Transmission Date: 20230417
  Serious: Yes (Hospitalization, Other)
  Sender: FDA-Public Use
  Company Number: CA-AMGEN-CANSL2023029646

PATIENT
  Age: 68 Year

DRUGS (1)
  1. PROLIA [Suspect]
     Active Substance: DENOSUMAB
     Indication: Product used for unknown indication
     Dosage: UNK
     Route: 065
     Dates: start: 20130108

REACTIONS (2)
  - Osteomyelitis chronic [Unknown]
  - Tooth disorder [Unknown]

NARRATIVE: CASE EVENT DATE: 20221001
